FAERS Safety Report 21873283 (Version 4)
Quarter: 2023Q1

REPORT INFORMATION
  Report Type: Spontaneous
  Country: US (occurrence: US)
  Receive Date: 20230117
  Receipt Date: 20230207
  Transmission Date: 20230418
  Serious: No
  Sender: FDA-Public Use
  Company Number: US-JNJFOC-20230126662

PATIENT
  Age: 58 Year
  Sex: Female
  Weight: 71 kg

DRUGS (1)
  1. SIMPONI [Suspect]
     Active Substance: GOLIMUMAB
     Indication: Rheumatoid arthritis
     Route: 058

REACTIONS (3)
  - Device issue [Unknown]
  - Accidental exposure to product [Unknown]
  - Underdose [Unknown]
